FAERS Safety Report 6255896-8 (Version None)
Quarter: 2009Q3

REPORT INFORMATION
  Report Type: 
  Country: None (occurrence: None)
  Receive Date: 20090703
  Receipt Date: 20090617
  Transmission Date: 20100115
  Serious: Yes (Death, Life-Threatening, Hospitalization)
  Sender: FDA-Public Use
  Company Number: BE-PFIZER INC-2009162490

PATIENT
  Age: 30 Year

DRUGS (38)
  1. BLINDED *NO SUBJECT DRUG [Suspect]
     Indication: ASPERGILLOSIS
     Dosage: 560 ML, 1X/DAY
     Route: 042
     Dates: start: 20090116, end: 20090116
  2. BLINDED *PLACEBO [Suspect]
     Indication: ASPERGILLOSIS
     Dosage: 560 ML, 1X/DAY
     Route: 042
     Dates: start: 20090116, end: 20090116
  3. BLINDED ANIDULAFUNGIN [Suspect]
     Indication: ASPERGILLOSIS
     Dosage: 560 ML, 1X/DAY
     Route: 042
     Dates: start: 20090116, end: 20090116
  4. BLINDED *NO SUBJECT DRUG [Suspect]
     Dosage: 280 ML, 1X/DAY
     Route: 042
     Dates: start: 20090117, end: 20090126
  5. BLINDED *PLACEBO [Suspect]
     Dosage: 280 ML, 1X/DAY
     Route: 042
     Dates: start: 20090117, end: 20090126
  6. BLINDED ANIDULAFUNGIN [Suspect]
     Dosage: 280 ML, 1X/DAY
     Route: 042
     Dates: start: 20090117, end: 20090126
  7. VORICONAZOLE [Suspect]
     Indication: ASPERGILLOSIS
     Dosage: 420 MG, 2X/DAY
     Route: 042
     Dates: start: 20090116, end: 20090117
  8. VORICONAZOLE [Suspect]
     Dosage: 280 MG, 2X/DAY
     Route: 042
     Dates: start: 20090117, end: 20090127
  9. CICLOSPORIN [Concomitant]
     Indication: IMMUNOSUPPRESSION
     Dosage: UNK
     Route: 048
     Dates: start: 20080101, end: 20090121
  10. VANCOMYCIN [Concomitant]
     Indication: PYREXIA
     Dosage: 1.5 MG, 1X/DAY
     Route: 042
     Dates: start: 20090109, end: 20090118
  11. VANCOMYCIN [Concomitant]
     Dosage: 1 MG, 1X/DAY
     Dates: start: 20090119, end: 20090119
  12. FOSCAVIR [Concomitant]
     Indication: CYTOMEGALOVIRUS INFECTION
     Dosage: 180 MG/KG, 1X/DAY
     Route: 042
     Dates: start: 20090114, end: 20090118
  13. FOSCAVIR [Concomitant]
     Dosage: 90 MG/KG, 1X/DAY
     Route: 042
     Dates: start: 20090119, end: 20090120
  14. FOSCAVIR [Concomitant]
     Dosage: 60 MG/KG, 1X/DAY
     Route: 042
     Dates: start: 20090121, end: 20090127
  15. OMEPRAZOLE [Concomitant]
     Indication: PROPHYLAXIS AGAINST GASTROINTESTINAL ULCER
     Dosage: 20 MG, 1X/DAY
     Route: 048
     Dates: start: 20081201, end: 20090124
  16. AMLODIPINE [Concomitant]
     Indication: HYPERTENSION
     Dosage: UNK
     Route: 048
     Dates: start: 20081201, end: 20090127
  17. MAGNESIUM SULFATE [Concomitant]
     Indication: SUPPLEMENTATION THERAPY
     Dosage: UNK
     Dates: start: 20081215, end: 20090127
  18. PERFUSALGAN [Concomitant]
     Indication: PYREXIA
     Dosage: UNK
     Route: 042
     Dates: start: 20081203
  19. POTASSIUM CHLORIDE [Concomitant]
     Indication: SUPPLEMENTATION THERAPY
     Dosage: UNK
     Dates: start: 20081231, end: 20090127
  20. BACTRIM [Concomitant]
     Indication: PROPHYLAXIS
     Dosage: 1 G, CYCLIC
     Dates: start: 20081231, end: 20090127
  21. RITUXIMAB [Concomitant]
     Indication: LYMPHOMA
     Dosage: 660 MG, WEEKLY
     Route: 042
     Dates: start: 20090102, end: 20090127
  22. XANAX [Concomitant]
     Indication: ANXIETY
     Dosage: UNK
     Route: 048
     Dates: start: 20090104, end: 20090119
  23. LITICAN [Concomitant]
     Indication: PROPHYLAXIS OF NAUSEA AND VOMITING
     Dosage: UNK
     Route: 042
     Dates: start: 20090105, end: 20090124
  24. CYMEVENE [Concomitant]
     Indication: CYTOMEGALOVIRUS INFECTION
     Dosage: 1000 MG, 1X/DAY
     Route: 042
     Dates: start: 20090107, end: 20090113
  25. MERONEM [Concomitant]
     Indication: PYREXIA
     Dosage: UNK
     Route: 042
     Dates: start: 20090107, end: 20090126
  26. BICLAR [Concomitant]
     Indication: PYREXIA
     Dosage: 1 G, 1X/DAY
     Route: 042
     Dates: start: 20090107, end: 20090111
  27. IMMUNOGLOBULINS [Concomitant]
     Dosage: 30 G, UNK
     Route: 042
     Dates: start: 20090109, end: 20090110
  28. ZANTAC [Concomitant]
     Indication: PROPHYLAXIS OF NAUSEA AND VOMITING
     Dosage: 300 MG, UNK
     Route: 048
     Dates: start: 20090112, end: 20090112
  29. LASIX [Concomitant]
     Dosage: UNK
     Route: 042
     Dates: start: 20090112, end: 20090123
  30. SOLU-CORTEF [Concomitant]
     Dosage: 250 MG, CYCLIC
     Route: 042
     Dates: start: 20090112, end: 20090126
  31. METHYLPREDNISOLONE SODIUM SUCCINATE [Concomitant]
     Indication: PROPHYLAXIS
     Dosage: 40 MG, CYCLIC
     Route: 042
     Dates: start: 20090112, end: 20090127
  32. XYZAL [Concomitant]
     Dosage: 10 MG, UNK
     Route: 048
     Dates: start: 20090112, end: 20090112
  33. CALCIUM GLUCONATE [Concomitant]
     Indication: HYPOCALCAEMIA
     Dosage: UNK
     Route: 042
     Dates: start: 20090113, end: 20090127
  34. ATROVENT [Concomitant]
     Indication: RESPIRATORY DISORDER
     Dosage: UNK
     Dates: start: 20090113, end: 20090127
  35. MEDICA [Concomitant]
     Indication: COUGH
     Dosage: UNK
     Route: 048
     Dates: start: 20090113, end: 20090113
  36. CALCIUM [Concomitant]
     Indication: HYPOCALCAEMIA
     Dosage: UNK
     Route: 042
     Dates: start: 20090115, end: 20090116
  37. POTASSIUM PHOSPHATE [Concomitant]
     Dosage: UNK
     Route: 042
     Dates: start: 20090117, end: 20090117
  38. DAKTARIN [Concomitant]
     Dosage: UNK
     Route: 061
     Dates: start: 20090117, end: 20090125

REACTIONS (6)
  - HYPOTENSION [None]
  - LACTIC ACIDOSIS [None]
  - METABOLIC ACIDOSIS [None]
  - MULTI-ORGAN FAILURE [None]
  - RENAL FAILURE [None]
  - SHOCK [None]
